FAERS Safety Report 5117602-X (Version None)
Quarter: 2006Q3

REPORT INFORMATION
  Report Type: 
  Country: None (occurrence: None)
  Receive Date: 20060929
  Receipt Date: 20060920
  Transmission Date: 20061208
  Serious: Yes (Hospitalization)
  Sender: FDA-Public Use
  Company Number: NO-JNJFOC-20060904921

PATIENT
  Age: 16 Year
  Sex: Male
  Weight: 60 kg

DRUGS (6)
  1. REMICADE [Suspect]
     Dosage: EVERY EIGTH WEEK
     Route: 042
  2. REMICADE [Suspect]
     Indication: CROHN'S DISEASE
     Route: 042
  3. IMUREL [Concomitant]
     Indication: CROHN'S DISEASE
     Route: 065
  4. MESASAL [Concomitant]
     Indication: CROHN'S DISEASE
     Route: 065
  5. VENOFER [Concomitant]
     Route: 042
  6. SYMBICORT [Concomitant]
     Route: 055

REACTIONS (1)
  - EPSTEIN-BARR VIRUS INFECTION [None]
